FAERS Safety Report 20975946 (Version 1)
Quarter: 2022Q2

REPORT INFORMATION
  Report Type: Spontaneous
  Country: FR (occurrence: FR)
  Receive Date: 20220617
  Receipt Date: 20220617
  Transmission Date: 20220720
  Serious: Yes (Other)
  Sender: FDA-Public Use
  Company Number: FR-SAMSUNG BIOEPIS-SB-2022-14242

PATIENT
  Age: 37 Year
  Sex: Male

DRUGS (6)
  1. INFLIXIMAB [Suspect]
     Active Substance: INFLIXIMAB
     Indication: Immune reconstitution inflammatory syndrome associated tuberculosis
     Dosage: D1, D15, M15
     Route: 042
  2. INFLIXIMAB [Suspect]
     Active Substance: INFLIXIMAB
     Route: 042
  3. TENOFOVIR [Concomitant]
     Active Substance: TENOFOVIR
     Indication: Immune reconstitution inflammatory syndrome associated tuberculosis
     Dosage: UNKNOWN
     Route: 065
  4. PREDNISONE [Concomitant]
     Active Substance: PREDNISONE
     Indication: Immune reconstitution inflammatory syndrome associated tuberculosis
     Dosage: MEDIAN DOSE OF 0.65 MG/KG/DAY
     Route: 065
  5. LAMIVUDINE [Concomitant]
     Active Substance: LAMIVUDINE
     Indication: Immune reconstitution inflammatory syndrome associated tuberculosis
     Dosage: UNKNOWN
     Route: 065
  6. EFAVIRENZ [Concomitant]
     Active Substance: EFAVIRENZ
     Indication: Immune reconstitution inflammatory syndrome associated tuberculosis
     Dosage: UNKNOWN
     Route: 065

REACTIONS (2)
  - Immune reconstitution inflammatory syndrome associated tuberculosis [Recovered/Resolved]
  - Off label use [Unknown]
